FAERS Safety Report 13035246 (Version 3)
Quarter: 2017Q1

REPORT INFORMATION
  Report Type: Spontaneous
  Country: JP (occurrence: JP)
  Receive Date: 20161216
  Receipt Date: 20170221
  Transmission Date: 20170428
  Serious: Yes (Death)
  Sender: FDA-Public Use
  Company Number: JP-BAYER-2016-232848

PATIENT
  Age: 81 Year
  Sex: Male
  Weight: 70 kg

DRUGS (5)
  1. SODIUM VALPROATE [Concomitant]
     Active Substance: VALPROATE SODIUM
     Dosage: 1 DF, QD
     Route: 048
     Dates: start: 20161204
  2. GADOVIST [Suspect]
     Active Substance: GADOBUTROL
     Indication: BRAIN NEOPLASM
  3. GADOVIST [Suspect]
     Active Substance: GADOBUTROL
     Indication: NUCLEAR MAGNETIC RESONANCE IMAGING BRAIN
     Dosage: 7 ML, ONCE
     Route: 042
     Dates: start: 20161206, end: 20161206
  4. AMLODIPINE [Concomitant]
     Active Substance: AMLODIPINE BESYLATE
     Dosage: 5 MG, QD
     Route: 048
     Dates: start: 20161202
  5. VITAMINS NOS [Concomitant]
     Active Substance: VITAMINS
     Dosage: 15 ?G, QD
     Route: 048
     Dates: start: 20161202

REACTIONS (3)
  - Respiratory arrest [Fatal]
  - Vomiting [Fatal]
  - Aspiration [Fatal]

NARRATIVE: CASE EVENT DATE: 20161206
